FAERS Safety Report 13246220 (Version 2)
Quarter: 2017Q3

REPORT INFORMATION
  Report Type: Spontaneous
  Country: FI (occurrence: FI)
  Receive Date: 20170217
  Receipt Date: 20170731
  Transmission Date: 20171127
  Serious: Yes (Disabling, Other)
  Sender: FDA-Public Use
  Company Number: FI-PFIZER INC-2017064678

PATIENT
  Age: 73 Year
  Sex: Female

DRUGS (3)
  1. OFTAQUIX [Concomitant]
     Active Substance: LEVOFLOXACIN
     Indication: INFECTION PROPHYLAXIS
     Dosage: 1 GTT, 4X/DAY
     Route: 047
     Dates: start: 20161020, end: 20161027
  2. VANCOMYCIN HOSPIRA [Suspect]
     Active Substance: VANCOMYCIN
     Indication: ENDOPHTHALMITIS
     Dosage: 1 MG, UNK
     Route: 031
     Dates: start: 20161019, end: 20161019
  3. NEVANAC [Concomitant]
     Active Substance: NEPAFENAC
     Indication: INFLAMMATION
     Dosage: 1 GTT, 3X/DAY
     Route: 047
     Dates: start: 20161020, end: 20161110

REACTIONS (1)
  - Retinal vasculitis [Not Recovered/Not Resolved]

NARRATIVE: CASE EVENT DATE: 20161030
